FAERS Safety Report 9258903 (Version 5)
Quarter: 2014Q2

REPORT INFORMATION
  Report Type: Report from Study
  Country: JP (occurrence: JP)
  Receive Date: 20130426
  Receipt Date: 20140620
  Transmission Date: 20141212
  Serious: Yes (Other)
  Sender: FDA-Public Use
  Company Number: JP-AMGEN-JPNCT2013029356

PATIENT
  Age: 54 Year
  Sex: Male
  Weight: 49 kg

DRUGS (14)
  1. DENOSUMAB [Suspect]
     Indication: PLASMA CELL MYELOMA
     Dosage: 120 MG, UNK
     Route: 058
     Dates: start: 20121025, end: 20130308
  2. ZOMETA [Concomitant]
     Dosage: 4 MG, QD
     Route: 042
     Dates: start: 20080904, end: 20120706
  3. ASPARA-CA [Concomitant]
     Dosage: 600 MG, QD
     Route: 048
     Dates: start: 20121025, end: 20130417
  4. ALFAROL [Concomitant]
     Dosage: 0.5 MUG, QD
     Route: 048
     Dates: start: 20121109, end: 20130417
  5. VELCADE [Concomitant]
     Dosage: UNK
     Route: 065
     Dates: start: 20120918, end: 20121225
  6. THALIDOMIDE [Concomitant]
     Dosage: 200 MG, QD
     Route: 048
     Dates: start: 20120918, end: 20130315
  7. DEXAMETHASONE [Concomitant]
     Dosage: 40 MG, QD
     Route: 048
     Dates: start: 20130107, end: 20130315
  8. ALKERAN [Concomitant]
     Dosage: 6 MG, QD
     Route: 048
     Dates: start: 20130107, end: 20130315
  9. MUCOSTA [Concomitant]
     Dosage: 300 MG, QD
     Route: 048
     Dates: start: 20121025
  10. PARIET [Concomitant]
     Dosage: 10 MG, QD
     Route: 048
     Dates: start: 20121025
  11. LENDORMIN [Concomitant]
     Dosage: 0.25 MG, QD
     Route: 048
     Dates: start: 20121025
  12. BAYASPIRIN [Concomitant]
     Dosage: 100 MG, QD
     Route: 048
     Dates: start: 20120918
  13. CODEINE PHOSPHATE [Concomitant]
     Dosage: UNK
     Route: 048
     Dates: start: 20121004
  14. LENADEX [Concomitant]
     Route: 048
     Dates: start: 20130107, end: 20130315

REACTIONS (1)
  - Osteonecrosis of jaw [Not Recovered/Not Resolved]
